FAERS Safety Report 4986250-4 (Version None)
Quarter: 2006Q2

REPORT INFORMATION
  Report Type: 
  Country: None (occurrence: None)
  Receive Date: 20060428
  Receipt Date: 20060420
  Transmission Date: 20061013
  Serious: Yes (Other)
  Sender: FDA-Public Use
  Company Number: PHEH2006US05194

PATIENT
  Age: 39 Year
  Sex: Female
  Weight: 65.759 kg

DRUGS (2)
  1. ELIDEL [Suspect]
     Indication: RASH
     Dosage: UNK, QOD
     Route: 061
     Dates: start: 20050131
  2. VITAMINS [Concomitant]

REACTIONS (4)
  - BIOPSY [None]
  - EXTRANODAL MARGINAL ZONE B-CELL LYMPHOMA (MALT TYPE) [None]
  - SKIN NEOPLASM EXCISION [None]
  - SKIN NODULE [None]
